FAERS Safety Report 22677154 (Version 10)
Quarter: 2025Q1

REPORT INFORMATION
  Report Type: Spontaneous
  Country: US (occurrence: US)
  Receive Date: 20230706
  Receipt Date: 20250313
  Transmission Date: 20250408
  Serious: Yes (Other)
  Sender: PFIZER
  Company Number: US-PFIZER INC-PV202300115792

PATIENT
  Age: 67 Year
  Sex: Female
  Weight: 92.971 kg

DRUGS (2)
  1. XALKORI [Suspect]
     Active Substance: CRIZOTINIB
     Indication: Lung neoplasm malignant
     Dosage: 10 MG, 2X/DAY
     Dates: start: 20230101
  2. XALKORI [Suspect]
     Active Substance: CRIZOTINIB
     Dosage: 250 MG CAPSULE TWICE DAILY
     Route: 048
     Dates: start: 20230606

REACTIONS (5)
  - Blindness [Not Recovered/Not Resolved]
  - Cataract [Not Recovered/Not Resolved]
  - Contusion [Not Recovered/Not Resolved]
  - Muscle spasms [Unknown]
  - Off label use [Unknown]

NARRATIVE: CASE EVENT DATE: 20230101
